FAERS Safety Report 5825769-0 (Version None)
Quarter: 2008Q3

REPORT INFORMATION
  Report Type: 
  Country: None (occurrence: None)
  Receive Date: 20080728
  Receipt Date: 20080728
  Transmission Date: 20090109
  Serious: Yes (Other)
  Sender: FDA-Public Use
  Company Number: None

PATIENT
  Sex: Male
  Weight: 70.3 kg

DRUGS (1)
  1. BEVACIZUMAB IND# 100824 [Suspect]
     Indication: MUCOPOLYSACCHARIDOSIS
     Dosage: 1050MG IV Q 3 WEEKS
     Route: 042

REACTIONS (4)
  - DYSPNOEA [None]
  - EJECTION FRACTION DECREASED [None]
  - HYPERHIDROSIS [None]
  - LEFT VENTRICULAR DYSFUNCTION [None]
